FAERS Safety Report 4324217-X (Version None)
Quarter: 2004Q1

REPORT INFORMATION
  Report Type: 
  Country: None (occurrence: None)
  Receive Date: 20040326
  Receipt Date: 20040107
  Transmission Date: 20041129
  Serious: No
  Sender: FDA-Public Use
  Company Number: US-GLAXOSMITHKLINE-A0492202A

PATIENT
  Age: 64 Year
  Sex: Female

DRUGS (4)
  1. ADVAIR DISKUS 100/50 [Suspect]
     Indication: ASTHMA
     Dosage: 1PUFF TWICE PER DAY
     Route: 055
  2. FLAGYL [Suspect]
     Indication: INFECTION
     Route: 065
  3. PENICILLIN V POTASSIUM [Suspect]
     Indication: INFECTION
     Route: 065
  4. SINGULAIR [Suspect]
     Route: 065

REACTIONS (1)
  - PRODUCTIVE COUGH [None]
